FAERS Safety Report 11831739 (Version 9)
Quarter: 2020Q3

REPORT INFORMATION
  Report Type: Spontaneous
  Country: US (occurrence: US)
  Receive Date: 20151214
  Receipt Date: 20200730
  Transmission Date: 20201102
  Serious: Yes (Other)
  Sender: FDA-Public Use
  Company Number: US-PFIZER INC-2015421946

PATIENT
  Age: 58 Year
  Sex: Female
  Weight: 52.16 kg

DRUGS (3)
  1. DILANTIN [Suspect]
     Active Substance: PHENYTOIN
     Indication: SEIZURE
     Dosage: 400 MG, UNK
  2. PRISTIQ EXTENDED?RELEASE [Suspect]
     Active Substance: DESVENLAFAXINE SUCCINATE
     Dosage: 50 MG, 1X/DAY
  3. DILANTIN [Suspect]
     Active Substance: PHENYTOIN
     Dosage: 300 MG, 1X/DAY
     Route: 048

REACTIONS (7)
  - Weight decreased [Recovered/Resolved]
  - White blood cell count increased [Unknown]
  - Escherichia infection [Recovered/Resolved]
  - Eosinophilic oesophagitis [Recovered/Resolved]
  - Cerebrovascular accident [Unknown]
  - Eosinophilic colitis [Unknown]
  - Weight increased [Unknown]
